FAERS Safety Report 5224584-9 (Version None)
Quarter: 2007Q1

REPORT INFORMATION
  Report Type: 
  Country: None (occurrence: None)
  Receive Date: 20070126
  Receipt Date: 20061130
  Transmission Date: 20070707
  Serious: Yes (Death)
  Sender: FDA-Public Use
  Company Number: T200601577

PATIENT
  Age: 49 Year
  Sex: Female

DRUGS (1)
  1. MEPERIDINE HCL [Suspect]
     Dosage: PARENTERAL
     Route: 051

REACTIONS (1)
  - DEATH [None]
